FAERS Safety Report 12921486 (Version 2)
Quarter: 2016Q4

REPORT INFORMATION
  Report Type: Spontaneous
  Country: AR (occurrence: AR)
  Receive Date: 20161108
  Receipt Date: 20161117
  Transmission Date: 20170207
  Serious: Yes (Hospitalization, Other)
  Sender: FDA-Public Use
  Company Number: AR-PFIZER INC-2016509541

PATIENT
  Age: 41 Year
  Sex: Male

DRUGS (1)
  1. SUTENT [Suspect]
     Active Substance: SUNITINIB MALATE
     Indication: METASTATIC RENAL CELL CARCINOMA
     Dosage: 50 MG, MONTHLY, SCHEME 4/2
     Dates: start: 20160103

REACTIONS (7)
  - Weight decreased [Recovered/Resolved]
  - Colitis [Recovered/Resolved]
  - Injury [Recovered/Resolved]
  - Malaise [Recovered/Resolved]
  - Diabetes mellitus [Recovered/Resolved]
  - Decreased appetite [Recovered/Resolved]
  - Vomiting [Recovered/Resolved]

NARRATIVE: CASE EVENT DATE: 201602
